FAERS Safety Report 4782651-8 (Version None)
Quarter: 2005Q3

REPORT INFORMATION
  Report Type: 
  Country: None (occurrence: None)
  Receive Date: 20050929
  Receipt Date: 20050527
  Transmission Date: 20060218
  Serious: No
  Sender: FDA-Public Use
  Company Number: 410026

PATIENT

DRUGS (3)
  1. COREG [Suspect]
     Indication: DRUG USE FOR UNKNOWN INDICATION
     Route: 048
  2. ATENOLOL [Concomitant]
     Dosage: 50MG PER DAY
  3. METOPROLOL XL [Concomitant]
     Dosage: 50MG PER DAY

REACTIONS (1)
  - TACHYCARDIA [None]
